FAERS Safety Report 9147649 (Version 3)
Quarter: 2014Q2

REPORT INFORMATION
  Report Type: Spontaneous
  Country: US (occurrence: US)
  Receive Date: 20130307
  Receipt Date: 20140624
  Transmission Date: 20141212
  Serious: Yes (Other)
  Sender: FDA-Public Use
  Company Number: US-JNJFOC-20130300468

PATIENT
  Sex: Male

DRUGS (6)
  1. LEVAQUIN [Suspect]
     Indication: RESPIRATORY DISORDER
     Route: 048
     Dates: start: 2011
  2. LEVAQUIN [Suspect]
     Indication: RESPIRATORY DISORDER
     Route: 048
  3. LEVAQUIN [Suspect]
     Indication: SINUSITIS
     Route: 048
     Dates: start: 2011
  4. LEVAQUIN [Suspect]
     Indication: SINUSITIS
     Route: 048
  5. LEVAQUIN [Suspect]
     Indication: BRONCHITIS
     Route: 048
  6. LEVAQUIN [Suspect]
     Indication: BRONCHITIS
     Route: 048
     Dates: start: 2011

REACTIONS (6)
  - Retinal detachment [Unknown]
  - Muscle rupture [Recovering/Resolving]
  - Connective tissue disorder [Unknown]
  - Retinal tear [Unknown]
  - Aphakia [Unknown]
  - Hypotony of eye [Unknown]
